FAERS Safety Report 9734907 (Version 2)
Quarter: 2013Q4

REPORT INFORMATION
  Report Type: Spontaneous
  Country: US (occurrence: US)
  Receive Date: 20131206
  Receipt Date: 20131227
  Transmission Date: 20140711
  Serious: Yes (Other)
  Sender: FDA-Public Use
  Company Number: US-PFIZER INC-2013349882

PATIENT
  Age: 53 Year
  Sex: Female

DRUGS (20)
  1. NEURONTIN [Suspect]
     Indication: FIBROMYALGIA
     Dosage: 300 MG, 3X/DAY
     Route: 048
     Dates: start: 20130823, end: 20131002
  2. NEURONTIN [Suspect]
     Indication: CARPAL TUNNEL SYNDROME
  3. DULERA [Concomitant]
     Dosage: FORMOTEROL FUMARATE 5MCG/ MOMETASONE FUROATE 200MCG, 2X/DAY
     Route: 055
  4. GEMFIBROZIL [Concomitant]
     Dosage: 600 MG, 2X/DAY
     Route: 048
  5. FENOFIBRATE [Concomitant]
     Dosage: 160 MG, 1X/DAY
     Route: 048
  6. LIPITOR [Concomitant]
     Dosage: 40 MG, 1X/DAY
     Route: 048
  7. AMLODIPINE BESYLATE [Concomitant]
     Dosage: 2.5 MG, 1X/DAY
     Route: 048
  8. REMERON [Concomitant]
     Dosage: 30 MG, 1X/DAY (HS)
     Route: 048
  9. COMBIVENT RESPIMAT [Concomitant]
     Dosage: IPRATROPIUM BROMIDE 20 MCG/ SALBUTAMOL SULFATE 100 MCG, AS NEEDED INHALED AS NEEDED FOUR TIMES DAILY
     Route: 055
  10. NOVOLOG [Concomitant]
     Dosage: (100 UNIT/ML) 40-70 UNITS WITH MEALS THREE TIMES A DAY
     Route: 058
  11. LANTUS SOLOSTAR [Concomitant]
     Dosage: 100 IU (100 UNIT/ML), 2X/DAY
     Route: 058
  12. LORAZEPAM [Concomitant]
     Dosage: 1 MG, AS NEEDED (BID PRN)
     Route: 048
  13. EPIPEN [Concomitant]
     Dosage: 0.3 MG/0.3 ML
  14. LYRICA [Concomitant]
     Dosage: 75 MG, 3X/DAY
     Route: 048
  15. ENALAPRIL MALEATE [Concomitant]
     Dosage: 20 MG, DAILY
     Route: 048
  16. ZOLPIDEM TARTRATE [Concomitant]
     Dosage: 10 MG, AS NEEDED (AT BEDTIME AS NEEDED ORALLY ONCE A DAY)
     Route: 048
  17. NEXIUM [Concomitant]
     Dosage: 40 MG, DAILY
     Route: 048
  18. LASIX [Concomitant]
     Dosage: 40 MG, 1X/DAY
     Route: 048
  19. ALBUTEROL SULFATE HFA [Concomitant]
     Dosage: 1 PUFF QID PRN
     Route: 055
  20. INSULIN [Concomitant]
     Dosage: 1 ML, 4X/DAY

REACTIONS (6)
  - Suicidal ideation [Unknown]
  - Depression [Recovered/Resolved]
  - Drug hypersensitivity [Unknown]
  - Headache [Recovered/Resolved]
  - Anxiety [Recovered/Resolved]
  - Dizziness [Recovered/Resolved]
